FAERS Safety Report 13815906 (Version 5)
Quarter: 2017Q3

REPORT INFORMATION
  Report Type: Report from Study
  Country: IT (occurrence: IT)
  Receive Date: 20170731
  Receipt Date: 20170914
  Transmission Date: 20171127
  Serious: Yes (Life-Threatening, Hospitalization, Other)
  Sender: FDA-Public Use
  Company Number: PHHY2017IT104422

PATIENT
  Age: 1 Year
  Sex: Female
  Weight: 10.7 kg

DRUGS (10)
  1. GLIVEC [Suspect]
     Active Substance: IMATINIB MESYLATE
     Dosage: 110 MG, QD
     Route: 048
     Dates: start: 20141125, end: 20150115
  2. GLIVEC [Suspect]
     Active Substance: IMATINIB MESYLATE
     Dosage: 100 MG, QD
     Route: 048
     Dates: start: 20150418, end: 20150419
  3. METHOTREXATE. [Suspect]
     Active Substance: METHOTREXATE
     Dosage: 8 MG, UNK
     Route: 037
     Dates: start: 20141104, end: 20141104
  4. GLIVEC [Suspect]
     Active Substance: IMATINIB MESYLATE
     Dosage: 110 MG, QD
     Route: 048
     Dates: start: 20150303, end: 20150316
  5. CPM [Suspect]
     Active Substance: CHLORPHENIRAMINE MALEATE
     Indication: ACUTE LYMPHOCYTIC LEUKAEMIA
     Dosage: 950 MG, UNK
     Route: 042
     Dates: start: 20141027, end: 20141027
  6. GLIVEC [Suspect]
     Active Substance: IMATINIB MESYLATE
     Indication: ACUTE LYMPHOCYTIC LEUKAEMIA
     Dosage: 135 MG, QD
     Route: 048
     Dates: start: 20141008, end: 20141109
  7. GLIVEC [Suspect]
     Active Substance: IMATINIB MESYLATE
     Dosage: 110 MG, QD
     Route: 048
     Dates: start: 20150211, end: 20150217
  8. ARA-C [Suspect]
     Active Substance: CYTARABINE
     Indication: ACUTE LYMPHOCYTIC LEUKAEMIA
     Dosage: 75 MG/M2, UNK
     Route: 042
     Dates: start: 20141028
  9. ARA-C [Suspect]
     Active Substance: CYTARABINE
     Dosage: 75 MG/M2, UNK
     Route: 042
     Dates: start: 20141104, end: 20141107
  10. METHOTREXATE. [Suspect]
     Active Substance: METHOTREXATE
     Indication: ACUTE LYMPHOCYTIC LEUKAEMIA
     Dosage: 8 MG, UNK
     Route: 037
     Dates: start: 20141028, end: 20141028

REACTIONS (16)
  - Pneumonia [Recovered/Resolved]
  - Clostridium difficile infection [Recovered/Resolved with Sequelae]
  - Mucosal inflammation [Recovered/Resolved]
  - Pneumonia [Recovered/Resolved]
  - Febrile neutropenia [Recovered/Resolved with Sequelae]
  - Haematotoxicity [Recovered/Resolved]
  - Febrile neutropenia [Recovered/Resolved]
  - Pain [Unknown]
  - Graft versus host disease [Recovered/Resolved with Sequelae]
  - Aplasia [Recovered/Resolved with Sequelae]
  - Pneumonia [Recovered/Resolved]
  - Urinary tract infection [Recovered/Resolved]
  - Escherichia infection [Recovered/Resolved with Sequelae]
  - Mucosal inflammation [Recovered/Resolved with Sequelae]
  - Mucosal inflammation [Recovered/Resolved with Sequelae]
  - Pyrexia [Recovered/Resolved]

NARRATIVE: CASE EVENT DATE: 20141022
